FAERS Safety Report 11018451 (Version 2)
Quarter: 2015Q2

REPORT INFORMATION
  Report Type: Spontaneous
  Country: US (occurrence: US)
  Receive Date: 20150412
  Receipt Date: 20150524
  Transmission Date: 20150821
  Serious: Yes (Other)
  Sender: FDA-Public Use
  Company Number: US-JNJFOC-20130313794

PATIENT

DRUGS (5)
  1. DOXORUBICIN [Suspect]
     Active Substance: DOXORUBICIN
     Indication: HODGKIN^S DISEASE
     Dosage: ON DAYS 1 AND 15 OF A 28-DAY CYCLE FOR A TOTAL OF 6 CYCLES
     Route: 042
  2. DACARBAZINE. [Suspect]
     Active Substance: DACARBAZINE
     Indication: HODGKIN^S DISEASE
     Dosage: ON DAYS 1 AND 15 OF A 28-DAY CYCLE FOR A TOTAL OF 6 CYCLES
     Route: 042
  3. BLEOMYCIN [Suspect]
     Active Substance: BLEOMYCIN SULFATE
     Indication: HODGKIN^S DISEASE
     Dosage: 10.0 UNITS/M2; ON DAYS 1 AND 15 OF A 28-DAY CYCLE FOR A TOTAL OF 6 CYCLES
     Route: 042
  4. VINBLASTINE [Suspect]
     Active Substance: VINBLASTINE
     Indication: HODGKIN^S DISEASE
     Dosage: ON DAYS 1 AND 15 OF A 28-DAY CYCLE FOR A TOTAL OF 6 CYCLES
     Route: 042
  5. DOXORUBICIN [Suspect]
     Active Substance: DOXORUBICIN
     Indication: HODGKIN^S DISEASE
     Dosage: ON DAYS 1 AND 15 OF A 28-DAY CYCLE FOR A TOTAL OF 6 CYCLES
     Route: 042

REACTIONS (1)
  - Hodgkin^s disease [Unknown]
